FAERS Safety Report 23243526 (Version 1)
Quarter: 2023Q4

REPORT INFORMATION
  Report Type: Spontaneous
  Country: FR (occurrence: FR)
  Receive Date: 20231130
  Receipt Date: 20231130
  Transmission Date: 20240109
  Serious: Yes (Hospitalization)
  Sender: FDA-Public Use
  Company Number: None

PATIENT

DRUGS (7)
  1. VALACYCLOVIR HYDROCHLORIDE [Suspect]
     Active Substance: VALACYCLOVIR HYDROCHLORIDE
     Indication: Prophylaxis
     Dosage: 2 DF, QD
     Route: 048
     Dates: start: 20231005, end: 20231115
  2. NOXAFIL [Suspect]
     Active Substance: POSACONAZOLE
     Indication: Infection prophylaxis
     Dosage: 3 DF, QD
     Route: 048
     Dates: start: 20231013, end: 20231115
  3. MELATONIN [Interacting]
     Active Substance: MELATONIN
     Indication: Product used for unknown indication
     Dosage: 1 DF, QD
     Route: 048
     Dates: start: 20230929, end: 20231115
  4. VENETOCLAX [Suspect]
     Active Substance: VENETOCLAX
     Indication: Acute myeloid leukaemia
     Dosage: 100 MG, QD
     Route: 048
     Dates: start: 20231023, end: 20231115
  5. MEROPENEM [Suspect]
     Active Substance: MEROPENEM
     Indication: Sepsis
     Dosage: 6 G, QD
     Route: 042
     Dates: start: 20231019, end: 20231107
  6. ACUPAN [Suspect]
     Active Substance: NEFOPAM HYDROCHLORIDE
     Indication: Pain
     Dosage: UNK
     Route: 042
     Dates: start: 20231017, end: 20231115
  7. AMBISOME [Suspect]
     Active Substance: AMPHOTERICIN B
     Indication: Sepsis
     Dosage: 168 MG, QD
     Route: 042
     Dates: start: 20231019, end: 20231108

REACTIONS (2)
  - Rash pruritic [Recovered/Resolved]
  - Purpura [Recovered/Resolved]

NARRATIVE: CASE EVENT DATE: 20231106
